FAERS Safety Report 7002325-2 (Version None)
Quarter: 2010Q3

REPORT INFORMATION
  Report Type: 
  Country: None (occurrence: None)
  Receive Date: 20100920
  Receipt Date: 20100602
  Transmission Date: 20110219
  Serious: No
  Sender: FDA-Public Use
  Company Number: US-ASTRAZENECA-2007UW00736

PATIENT
  Age: 20708 Day
  Sex: Male
  Weight: 102.7 kg

DRUGS (38)
  1. SEROQUEL [Suspect]
     Indication: DEPRESSION
     Route: 048
     Dates: start: 20050601, end: 20060501
  2. SEROQUEL [Suspect]
     Indication: POST-TRAUMATIC STRESS DISORDER
     Route: 048
     Dates: start: 20050601, end: 20060501
  3. SEROQUEL [Suspect]
     Indication: SLEEP DISORDER
     Route: 048
     Dates: start: 20050601, end: 20060501
  4. SEROQUEL [Suspect]
     Dosage: 100-300 MG
     Route: 048
  5. SEROQUEL [Suspect]
     Dosage: 100-300 MG
     Route: 048
  6. SEROQUEL [Suspect]
     Dosage: 100-300 MG
     Route: 048
  7. TRAZODONE HCL [Concomitant]
     Route: 065
  8. WELLBUTRIN [Concomitant]
     Route: 065
  9. CYMBALTA [Concomitant]
     Route: 065
  10. LUNESTA [Concomitant]
     Route: 065
  11. OXYCODONE HCL [Concomitant]
     Route: 048
  12. VERAPAMIL [Concomitant]
     Route: 048
  13. PREDNISONE [Concomitant]
     Route: 048
  14. KLONOPIN [Concomitant]
     Route: 048
  15. FLOVENT [Concomitant]
     Dosage: 220 MCG, 3 PUFFS TWICE DAILY
     Route: 065
  16. MYCELEX [Concomitant]
     Dosage: 5 PILLS DAILY
     Route: 065
  17. ALBUTEROL SULFATE [Concomitant]
     Dosage: 0.5 MG/ML, 6 TIMES/DAY
     Route: 065
  18. ATROVENT [Concomitant]
     Route: 065
  19. RESTORIL [Concomitant]
     Route: 065
  20. RANITIDINE [Concomitant]
     Route: 065
  21. THEOPHYLLINE [Concomitant]
     Route: 065
  22. GUAIFENESIN [Concomitant]
     Route: 065
  23. GEMFIBROZIL [Concomitant]
     Route: 065
  24. NEFAZODONE HCL [Concomitant]
     Route: 065
  25. LEVALBUTEROL HCL [Concomitant]
     Route: 065
  26. ENOXAPARIN SODIUM [Concomitant]
     Route: 065
  27. ALPRAZOLAM [Concomitant]
     Route: 065
  28. NICODERM [Concomitant]
     Route: 065
  29. SERZONE [Concomitant]
     Route: 065
  30. ASPIRIN [Concomitant]
     Route: 065
  31. SINGULAIR [Concomitant]
     Route: 065
  32. AEROBID SPRAY [Concomitant]
     Route: 065
  33. ZINACEF [Concomitant]
     Route: 065
  34. ZITHROMAX [Concomitant]
     Route: 065
  35. PROVENTIL [Concomitant]
     Route: 065
  36. LANTUS [Concomitant]
     Dosage: 100 U/ML
     Route: 065
  37. INSULIN [Concomitant]
     Dosage: 0.5/30 G
     Route: 065
  38. TRICOR [Concomitant]

REACTIONS (7)
  - DISORIENTATION [None]
  - IRRITABILITY [None]
  - MENISCUS LESION [None]
  - OSTEOARTHRITIS [None]
  - PLICA SYNDROME [None]
  - POLYP [None]
  - TYPE 2 DIABETES MELLITUS [None]
